FAERS Safety Report 15703050 (Version 1)
Quarter: 2018Q4

REPORT INFORMATION
  Report Type: Spontaneous
  Country: US (occurrence: US)
  Receive Date: 20181210
  Receipt Date: 20181210
  Transmission Date: 20190205
  Serious: No
  Sender: FDA-Public Use
  Company Number: US-PHARMING-PHAUS2018000797

PATIENT

DRUGS (14)
  1. CLONAZEPAM. [Concomitant]
     Active Substance: CLONAZEPAM
  2. EPINEPHRINE. [Concomitant]
     Active Substance: EPINEPHRINE
  3. CITALOPRAM [Concomitant]
     Active Substance: CITALOPRAM HYDROBROMIDE
  4. BIOTIN [Concomitant]
     Active Substance: BIOTIN
  5. STERILE WATER [Concomitant]
     Active Substance: WATER
  6. SODIUM CHLORIDE. [Concomitant]
     Active Substance: SODIUM CHLORIDE
  7. RANITIDINE. [Concomitant]
     Active Substance: RANITIDINE
  8. RUCONEST [Suspect]
     Active Substance: HUMAN C1-ESTERASE INHIBITOR
     Indication: HEREDITARY ANGIOEDEMA
     Dosage: 4200 IU, AS NEEDED
     Route: 042
     Dates: start: 20181003
  9. TAKHZYRO [Concomitant]
     Active Substance: LANADELUMAB-FLYO
  10. DIVALPROEX SODIUM. [Concomitant]
     Active Substance: DIVALPROEX SODIUM
  11. COLESEVELAM [Concomitant]
     Active Substance: COLESEVELAM
  12. CLONIDINE. [Concomitant]
     Active Substance: CLONIDINE
  13. CETIRIZINE [Concomitant]
     Active Substance: CETIRIZINE HYDROCHLORIDE
  14. NORETHIN-ETH ESTRA-FERROUS FUM [Concomitant]

REACTIONS (2)
  - Loss of consciousness [Unknown]
  - Headache [Unknown]
